FAERS Safety Report 5177879-1 (Version None)
Quarter: 2006Q4

REPORT INFORMATION
  Report Type: 
  Country: None (occurrence: None)
  Receive Date: 20061208
  Receipt Date: 20061127
  Transmission Date: 20070319
  Serious: Yes (Other)
  Sender: FDA-Public Use
  Company Number: 2006147856

PATIENT

DRUGS (1)
  1. LYRICA [Suspect]

REACTIONS (2)
  - DEPRESSION [None]
  - MOOD SWINGS [None]
